FAERS Safety Report 7627051-8 (Version None)
Quarter: 2011Q3

REPORT INFORMATION
  Report Type: 
  Country: None (occurrence: None)
  Receive Date: 20110701
  Receipt Date: 20110205
  Transmission Date: 20111222
  Serious: Yes (Life-Threatening, Hospitalization)
  Sender: FDA-Public Use
  Company Number: 7040577

PATIENT
  Age: 50 Year
  Sex: Female

DRUGS (2)
  1. REBIF [Suspect]
     Indication: RELAPSING-REMITTING MULTIPLE SCLEROSIS
     Dosage: 44 MCG, 3 IN 1 WK, SUBCUTANEOUS
     Route: 058
     Dates: start: 20090701
  2. BACLOFEN [Suspect]
     Indication: DEVICE RELATED INFECTION
     Dates: start: 20101201, end: 20101201

REACTIONS (3)
  - DEVICE RELATED INFECTION [None]
  - CHILLS [None]
  - UNRESPONSIVE TO STIMULI [None]
